FAERS Safety Report 9851029 (Version 1)
Quarter: 2014Q1

REPORT INFORMATION
  Report Type: Spontaneous
  Country: US (occurrence: US)
  Receive Date: 20140128
  Receipt Date: 20140128
  Transmission Date: 20141002
  Serious: No
  Sender: FDA-Public Use
  Company Number: US-DYAX CORP.-2013DX000170

PATIENT
  Age: 53 Year
  Sex: Female

DRUGS (2)
  1. KALBITOR [Suspect]
     Indication: HEREDITARY ANGIOEDEMA
     Route: 058
     Dates: start: 20130905, end: 20130905
  2. KALBITOR [Suspect]
     Route: 058

REACTIONS (1)
  - Road traffic accident [Recovered/Resolved]
